FAERS Safety Report 14525147 (Version 1)
Quarter: 2018Q1

REPORT INFORMATION
  Report Type: Spontaneous
  Country: BR (occurrence: BR)
  Receive Date: 20180213
  Receipt Date: 20180213
  Transmission Date: 20180509
  Serious: Yes (Other)
  Sender: FDA-Public Use
  Company Number: BR-GLAXOSMITHKLINE-BR2018GSK023296

PATIENT
  Age: 44 Year
  Sex: Male

DRUGS (1)
  1. COMBODART [Suspect]
     Active Substance: DUTASTERIDE\TAMSULOSIN
     Indication: PROSTATIC DISORDER
     Dosage: 1 DF, QD, CAPSULE
     Dates: start: 20180122

REACTIONS (2)
  - Urinary retention [Unknown]
  - Disease recurrence [Unknown]

NARRATIVE: CASE EVENT DATE: 20180207
